FAERS Safety Report 21726591 (Version 1)
Quarter: 2022Q4

REPORT INFORMATION
  Report Type: Spontaneous
  Country: JP (occurrence: JP)
  Receive Date: 20221214
  Receipt Date: 20221214
  Transmission Date: 20230112
  Serious: Yes (Hospitalization, Other)
  Sender: FDA-Public Use
  Company Number: JP-SA-SAC20221209001584

PATIENT
  Age: 77 Year
  Sex: Female
  Weight: 37 kg

DRUGS (6)
  1. AVAPRO [Suspect]
     Active Substance: IRBESARTAN
     Dosage: 100 MG, QD
     Route: 048
  2. AMLODIPINE BESYLATE [Suspect]
     Active Substance: AMLODIPINE BESYLATE
     Indication: Product used for unknown indication
     Dosage: 2.5MG, QD
     Route: 048
  3. PRAVASTATIN SODIUM [Concomitant]
     Active Substance: PRAVASTATIN SODIUM
  4. ELDECALCITOL [Concomitant]
     Active Substance: ELDECALCITOL
  5. MACROGOLUM [Concomitant]
  6. MIYA-BM [Concomitant]
     Active Substance: CLOSTRIDIUM BUTYRICUM SPORES STRAIN M-55

REACTIONS (1)
  - Diabetic ketoacidosis [Unknown]
